FAERS Safety Report 24263383 (Version 17)
Quarter: 2025Q4

REPORT INFORMATION
  Report Type: Spontaneous
  Country: EU (occurrence: EU)
  Receive Date: 20240829
  Receipt Date: 20251110
  Transmission Date: 20260118
  Serious: Yes (Hospitalization, Other)
  Sender: MYLAN
  Company Number: EU-SYNOPTIS-050-L-0003

PATIENT
  Age: 31 Year
  Sex: Female

DRUGS (69)
  1. ZOLPIDEM [Interacting]
     Active Substance: ZOLPIDEM TARTRATE
     Indication: Mental disorder
     Dosage: UNK
  2. ZOLPIDEM [Interacting]
     Active Substance: ZOLPIDEM TARTRATE
     Indication: Weight control
     Dosage: UNK
  3. ZOLPIDEM [Interacting]
     Active Substance: ZOLPIDEM TARTRATE
     Indication: Insomnia
  4. ZOLPIDEM [Interacting]
     Active Substance: ZOLPIDEM TARTRATE
     Indication: Depression
  5. ZOLPIDEM [Interacting]
     Active Substance: ZOLPIDEM TARTRATE
     Indication: Mental disorder
  6. ZOLPIDEM [Interacting]
     Active Substance: ZOLPIDEM TARTRATE
     Indication: Weight increased
  7. AMOXICILLIN\CLAVULANIC ACID [Interacting]
     Active Substance: AMOXICILLIN\CLAVULANIC ACID
     Indication: Oropharyngeal pain
     Dosage: 1 GRAM, Q8H (3 GRAM, QD)
  8. AMOXICILLIN\CLAVULANIC ACID [Interacting]
     Active Substance: AMOXICILLIN\CLAVULANIC ACID
     Indication: Dysphagia
  9. AMOXICILLIN\CLAVULANIC ACID [Interacting]
     Active Substance: AMOXICILLIN\CLAVULANIC ACID
     Indication: Throat irritation
  10. SERTRALINE [Suspect]
     Active Substance: SERTRALINE HYDROCHLORIDE
     Indication: Depression
     Dosage: 100 MG/D IN THE MORNING
  11. SERTRALINE [Suspect]
     Active Substance: SERTRALINE HYDROCHLORIDE
     Indication: Insomnia
  12. AMLODIPINE [Suspect]
     Active Substance: AMLODIPINE BESYLATE
     Indication: Hypertension
     Dosage: 10 MG OF AMLODIPINE
  13. AMLODIPINE [Suspect]
     Active Substance: AMLODIPINE BESYLATE
     Indication: Hypertension
  14. BUPROPION [Interacting]
     Active Substance: BUPROPION
     Indication: Insomnia
     Dosage: UNK
  15. BUPROPION [Interacting]
     Active Substance: BUPROPION
     Indication: Depression
     Dosage: UNK
  16. BUPROPION [Interacting]
     Active Substance: BUPROPION
     Indication: Weight control
  17. BUPROPION [Interacting]
     Active Substance: BUPROPION
     Indication: Mental disorder
  18. DICLOFENAC [Interacting]
     Active Substance: DICLOFENAC
     Indication: Dysphagia
     Dosage: UNK (LAVAGE FLUID)
  19. DICLOFENAC [Interacting]
     Active Substance: DICLOFENAC
     Indication: Throat irritation
     Dosage: UNK
  20. DICLOFENAC [Interacting]
     Active Substance: DICLOFENAC
     Indication: Oropharyngeal pain
  21. DICLOFENAC [Interacting]
     Active Substance: DICLOFENAC
     Indication: Throat irritation
  22. KETOPROFEN [Suspect]
     Active Substance: KETOPROFEN
     Indication: Oropharyngeal pain
     Dosage: 100 MILLIGRAM, IN COMBINATION WITH METAMIZOLE 2500 MG ROUTE OF ADMIN (FREE TEXT): INTRAVENOUS (NOT OTHERWISE SPECIFIED)
  23. ACETAMINOPHEN [Interacting]
     Active Substance: ACETAMINOPHEN
     Indication: Throat irritation
     Dosage: 1 GRAM, Q8H (3 GRAM, QD (3X1 GM)), 1 G, TID
  24. ACETAMINOPHEN [Interacting]
     Active Substance: ACETAMINOPHEN
     Indication: Dysphagia
     Dosage: 1 G, TID
  25. ACETAMINOPHEN [Interacting]
     Active Substance: ACETAMINOPHEN
     Indication: Oropharyngeal pain
  26. ACETAMINOPHEN [Interacting]
     Active Substance: ACETAMINOPHEN
     Indication: Burning sensation
  27. ACETAMINOPHEN [Interacting]
     Active Substance: ACETAMINOPHEN
     Indication: Throat irritation
  28. ACETAMINOPHEN [Interacting]
     Active Substance: ACETAMINOPHEN
     Indication: Dysphagia
  29. ACETAMINOPHEN [Interacting]
     Active Substance: ACETAMINOPHEN
     Indication: Oropharyngeal pain
  30. METAMIZOLE [Suspect]
     Active Substance: METAMIZOLE
     Indication: Oropharyngeal pain
     Dosage: INTRAVENOUS KETOPROFEN 100 MG IN COMBINATION WITH METHAMIZOLE 2500 MG
  31. AMOXICILLIN [Interacting]
     Active Substance: AMOXICILLIN
     Indication: Oropharyngeal pain
     Dosage: 1 GRAM, Q8H (3 GRAM, QD (3X1 GM))
  32. AMOXICILLIN [Interacting]
     Active Substance: AMOXICILLIN
     Indication: Throat irritation
     Dosage: 1 G, TID
  33. AMOXICILLIN [Interacting]
     Active Substance: AMOXICILLIN
     Indication: Dysphagia
  34. AMOXICILLIN [Interacting]
     Active Substance: AMOXICILLIN
     Indication: Burning sensation
  35. AMOXICILLIN [Interacting]
     Active Substance: AMOXICILLIN
     Indication: Throat irritation
  36. AMOXICILLIN [Interacting]
     Active Substance: AMOXICILLIN
     Indication: Oropharyngeal pain
  37. BUPROPION HYDROCHLORIDE\NALTREXONE HYDROCHLORIDE [Interacting]
     Active Substance: BUPROPION HYDROCHLORIDE\NALTREXONE HYDROCHLORIDE
     Indication: Weight control
     Dosage: UNK
  38. BUPROPION HYDROCHLORIDE\NALTREXONE HYDROCHLORIDE [Interacting]
     Active Substance: BUPROPION HYDROCHLORIDE\NALTREXONE HYDROCHLORIDE
     Indication: Mental disorder
     Dosage: STRENGTH 8/90 MG
  39. BUPROPION HYDROCHLORIDE\NALTREXONE HYDROCHLORIDE [Interacting]
     Active Substance: BUPROPION HYDROCHLORIDE\NALTREXONE HYDROCHLORIDE
     Indication: Mental disorder
  40. SEMAGLUTIDE [Suspect]
     Active Substance: SEMAGLUTIDE
     Indication: Weight control
     Dosage: UNK
  41. SEMAGLUTIDE [Suspect]
     Active Substance: SEMAGLUTIDE
     Indication: Mental disorder
     Dosage: UNK
  42. SEMAGLUTIDE [Suspect]
     Active Substance: SEMAGLUTIDE
     Indication: Insomnia
  43. SEMAGLUTIDE [Suspect]
     Active Substance: SEMAGLUTIDE
     Indication: Depression
  44. SEMAGLUTIDE [Suspect]
     Active Substance: SEMAGLUTIDE
     Indication: Weight increased
  45. NALTREXONE [Interacting]
     Active Substance: NALTREXONE
     Indication: Insomnia
     Dosage: UNK
  46. NALTREXONE [Interacting]
     Active Substance: NALTREXONE
     Indication: Depression
  47. LIDOCAINE [Suspect]
     Active Substance: LIDOCAINE
     Indication: Oropharyngeal pain
     Dosage: UNK
  48. LIDOCAINE [Suspect]
     Active Substance: LIDOCAINE
     Indication: Dysphagia
  49. LIDOCAINE [Suspect]
     Active Substance: LIDOCAINE
     Indication: Throat irritation
  50. AMBROXOL [Suspect]
     Active Substance: AMBROXOL
     Indication: Oropharyngeal pain
     Dosage: UNK
  51. AMBROXOL [Suspect]
     Active Substance: AMBROXOL
     Indication: Mental disorder
     Dosage: UNK
  52. AMBROXOL [Suspect]
     Active Substance: AMBROXOL
     Indication: Neuralgia
  53. RAMIPRIL [Suspect]
     Active Substance: RAMIPRIL
     Indication: Hypertension
     Dosage: 10 MILLIGRAM, QD
  54. RAMIPRIL [Suspect]
     Active Substance: RAMIPRIL
     Indication: Hypertension
  55. MAGNESIUM SULFATE [Concomitant]
     Active Substance: MAGNESIUM SULFATE
     Dosage: UNK
  56. MAGNESIUM SULFATE [Concomitant]
     Active Substance: MAGNESIUM SULFATE
     Dosage: ROUTE OF ADMIN (FREE TEXT): INTRAVENOUS (NOT OTHERWISE SPECIFIED)
  57. ALPHA LIPOIC ACID [Concomitant]
     Active Substance: .ALPHA.-LIPOIC ACID
     Dosage: UNK
  58. MIRTAZAPINE [Concomitant]
     Active Substance: MIRTAZAPINE
     Indication: Insomnia
     Dosage: 30 MG OF MIRTAZAPINE AT NIGHT
  59. MIRTAZAPINE [Concomitant]
     Active Substance: MIRTAZAPINE
     Indication: Depression
  60. MIRTAZAPINE [Concomitant]
     Active Substance: MIRTAZAPINE
     Indication: Hypertension
  61. TIRZEPATIDE [Concomitant]
     Active Substance: TIRZEPATIDE
     Dosage: UNK
  62. TIRZEPATIDE [Concomitant]
     Active Substance: TIRZEPATIDE
     Dosage: UNK
  63. DULOXETINE [Concomitant]
     Active Substance: DULOXETINE
     Indication: Product used for unknown indication
     Dosage: UNK
  64. DULOXETINE [Concomitant]
     Active Substance: DULOXETINE
     Dosage: UNK
  65. INDAPAMIDE [Concomitant]
     Active Substance: INDAPAMIDE
     Indication: Product used for unknown indication
     Dosage: UNK
  66. INDAPAMIDE [Concomitant]
     Active Substance: INDAPAMIDE
  67. TELMISARTAN [Concomitant]
     Active Substance: TELMISARTAN
     Indication: Product used for unknown indication
     Dosage: UNK
  68. TELMISARTAN [Concomitant]
     Active Substance: TELMISARTAN
     Dosage: UNK
  69. INDAPAMIDE\TELMISARTAN [Concomitant]
     Active Substance: INDAPAMIDE\TELMISARTAN
     Dosage: UNK

REACTIONS (20)
  - Mental disorder [Unknown]
  - Oropharyngeal pain [Recovering/Resolving]
  - Dysphagia [Recovering/Resolving]
  - Condition aggravated [Recovering/Resolving]
  - Food interaction [Recovering/Resolving]
  - Drug interaction [Recovering/Resolving]
  - Contraindicated product administered [Unknown]
  - Labelled drug-drug interaction medication error [Unknown]
  - Burning sensation [Recovering/Resolving]
  - Medication error [Unknown]
  - Pain [Recovering/Resolving]
  - Throat irritation [Recovering/Resolving]
  - Drug intolerance [Unknown]
  - Off label use [Unknown]
  - Emotional distress [Unknown]
  - Increased appetite [Unknown]
  - Nausea [Unknown]
  - Weight increased [Unknown]
  - Abdominal pain [Unknown]
  - Drug ineffective [Unknown]
